FAERS Safety Report 23888690 (Version 1)
Quarter: 2024Q2

REPORT INFORMATION
  Report Type: Spontaneous
  Country: GR (occurrence: GR)
  Receive Date: 20240523
  Receipt Date: 20240523
  Transmission Date: 20240716
  Serious: Yes (Death, Hospitalization, Other)
  Sender: FDA-Public Use
  Company Number: GR-STERISCIENCE B.V.-2024-ST-000675

PATIENT
  Age: 68 Year
  Sex: Female

DRUGS (3)
  1. VANCOMYCIN [Suspect]
     Active Substance: VANCOMYCIN
     Indication: Sepsis
     Dosage: UNK
     Route: 042
  2. PIPERACILLIN SODIUM\TAZOBACTAM SODIUM [Suspect]
     Active Substance: PIPERACILLIN SODIUM\TAZOBACTAM SODIUM
     Indication: Sepsis
     Dosage: UNK
     Route: 042
  3. CLINDAMYCIN [Suspect]
     Active Substance: CLINDAMYCIN
     Indication: Sepsis
     Dosage: UNK
     Route: 042

REACTIONS (1)
  - Drug ineffective for unapproved indication [Fatal]
